FAERS Safety Report 11863193 (Version 1)
Quarter: 2015Q4

REPORT INFORMATION
  Report Type: Spontaneous
  Country: US (occurrence: US)
  Receive Date: 20151223
  Receipt Date: 20151223
  Transmission Date: 20160305
  Serious: No
  Sender: FDA-Public Use
  Company Number: US-BAYER-2015-488463

PATIENT
  Age: 80 Year
  Sex: Female
  Weight: 73.16 kg

DRUGS (8)
  1. MIRALAX [Suspect]
     Active Substance: POLYETHYLENE GLYCOL 3350
     Indication: CONSTIPATION
     Dosage: 1 DF, UNK
  2. LISINOPRIL. [Concomitant]
     Active Substance: LISINOPRIL
  3. ASPIRIN. [Concomitant]
     Active Substance: ASPIRIN
  4. MIRALAX [Suspect]
     Active Substance: POLYETHYLENE GLYCOL 3350
     Indication: CONSTIPATION
     Dosage: UNK
  5. VITAMIN B12 [Concomitant]
     Active Substance: CYANOCOBALAMIN
  6. PRAVASTATIN [Concomitant]
     Active Substance: PRAVASTATIN\PRAVASTATIN SODIUM
  7. MIRALAX [Suspect]
     Active Substance: POLYETHYLENE GLYCOL 3350
     Indication: CONSTIPATION
     Dosage: 0.5-1, DF, PRN
     Route: 048
  8. D3 VIGANTOL FORTE [Concomitant]

REACTIONS (4)
  - Expired product administered [None]
  - Underdose [None]
  - Off label use [None]
  - Product use issue [None]
